FAERS Safety Report 6885195-2 (Version None)
Quarter: 2010Q3

REPORT INFORMATION
  Report Type: 
  Country: None (occurrence: None)
  Receive Date: 20100729
  Receipt Date: 20100729
  Transmission Date: 20110219
  Serious: No
  Sender: FDA-Public Use
  Company Number: None

PATIENT
  Age: 45 Year
  Sex: Male
  Weight: 86.1834 kg

DRUGS (1)
  1. LEVAQUIN [Suspect]
     Indication: PROSTATE INFECTION
     Dosage: 750MG 1 PER DAY PO
     Route: 048
     Dates: start: 20100704, end: 20100705

REACTIONS (3)
  - INSOMNIA [None]
  - MYALGIA [None]
  - TENDON PAIN [None]
